FAERS Safety Report 17303085 (Version 2)
Quarter: 2021Q2

REPORT INFORMATION
  Report Type: Spontaneous
  Country: FR (occurrence: FR)
  Receive Date: 20200122
  Receipt Date: 20210423
  Transmission Date: 20210716
  Serious: Yes (Hospitalization)
  Sender: FDA-Public Use
  Company Number: FR-BAUSCH-BL-2020-001069

PATIENT
  Age: 75 Year
  Sex: Male
  Weight: 63 kg

DRUGS (9)
  1. EPHEDRINE. [Concomitant]
     Active Substance: EPHEDRINE
     Indication: ANAESTHESIA
     Dosage: 6 MG ONCE IN TOTAL
     Route: 042
     Dates: start: 20191217, end: 20191217
  2. OXYNORMORO [Concomitant]
     Active Substance: OXYCODONE HYDROCHLORIDE
     Indication: PAIN
     Dosage: 1 DOSAGE FORMS (5MG) ONCE IN TOTAL
     Route: 048
     Dates: start: 20191217, end: 20191217
  3. ATROPINE. [Concomitant]
     Active Substance: ATROPINE
     Indication: ANAESTHESIA
     Dosage: 1 MG ONCE IN TOTAL
     Route: 042
     Dates: start: 20191217, end: 20191217
  4. GENTAMICINE [Suspect]
     Active Substance: GENTAMICIN
     Indication: ANTIBIOTIC PROPHYLAXIS
     Dosage: 320 MG ONCE IN TOTAL
     Route: 042
     Dates: start: 20191217, end: 20191217
  5. KETAMINE [Concomitant]
     Active Substance: KETAMINE
     Indication: ANAESTHESIA
     Dosage: 10 MG ONCE IN TOTAL
     Route: 042
     Dates: start: 20191217, end: 20191217
  6. PROPOFOL. [Concomitant]
     Active Substance: PROPOFOL
     Indication: ANAESTHESIA
     Dosage: 120 MG ONCE IN TOTAL
     Route: 042
     Dates: start: 20191217, end: 20191217
  7. PROSTIGMINE [Concomitant]
     Indication: ANAESTHESIA
     Dosage: (0.5 MG/1 ML) SOLUTION INJECTABLE  (2.5 MG ONCE IN TOTAL)
     Route: 042
     Dates: start: 20191217, end: 20191217
  8. CLINDAMYCINE BASE [Suspect]
     Active Substance: CLINDAMYCIN HYDROCHLORIDE
     Indication: ANTIBIOTIC PROPHYLAXIS
     Dosage: 900 MG ONCE IN TOTAL
     Route: 042
     Dates: start: 20191217, end: 20191217
  9. ATRACURIUM [Concomitant]
     Active Substance: ATRACURIUM
     Indication: ANAESTHESIA
     Dosage: 45 MG ONCE IN TOTAL
     Route: 042
     Dates: start: 20191217, end: 20191217

REACTIONS (2)
  - Pruritus [Recovered/Resolved]
  - Rash maculo-papular [Recovered/Resolved]

NARRATIVE: CASE EVENT DATE: 20191218
